FAERS Safety Report 15374483 (Version 1)
Quarter: 2018Q3

REPORT INFORMATION
  Report Type: Spontaneous
  Country: DK (occurrence: DK)
  Receive Date: 20180912
  Receipt Date: 20180912
  Transmission Date: 20181010
  Serious: Yes (Other)
  Sender: FDA-Public Use
  Company Number: DK-MYLANLABS-2018M1066291

PATIENT
  Age: 28 Year
  Sex: Female

DRUGS (1)
  1. GABAPENTIN. [Suspect]
     Active Substance: GABAPENTIN
     Indication: PAIN
     Dosage: 3600 MG, QD (STYRKE: 300MG)
     Route: 048
     Dates: start: 20170524

REACTIONS (3)
  - Epilepsy [Recovered/Resolved]
  - Respiratory paralysis [Recovered/Resolved]
  - Paralysis [Recovered/Resolved]

NARRATIVE: CASE EVENT DATE: 2017
